FAERS Safety Report 8180785 (Version 3)
Quarter: 2024Q2

REPORT INFORMATION
  Report Type: Report from Study
  Country: CA (occurrence: CA)
  Receive Date: 20111014
  Receipt Date: 20240625
  Transmission Date: 20240715
  Serious: Yes (Hospitalization)
  Sender: FDA-Public Use
  Company Number: CA-JNJFOC-20111004611

PATIENT
  Age: 71 Year
  Sex: Male
  Weight: 102.15 kg

DRUGS (2)
  1. STELARA [Suspect]
     Active Substance: USTEKINUMAB
     Indication: Psoriasis
     Route: 058
     Dates: start: 20060310, end: 20190402
  2. STELARA [Suspect]
     Active Substance: USTEKINUMAB
     Route: 058
     Dates: start: 20110714

REACTIONS (3)
  - Syncope [Recovered/Resolved]
  - Gout [Unknown]
  - Road traffic accident [Unknown]

NARRATIVE: CASE EVENT DATE: 20110805
